FAERS Safety Report 7275149-9 (Version None)
Quarter: 2011Q1

REPORT INFORMATION
  Report Type: 
  Country: None (occurrence: None)
  Receive Date: 20110204
  Receipt Date: 20110124
  Transmission Date: 20110831
  Serious: Yes (Other)
  Sender: FDA-Public Use
  Company Number: PHHY2010JP81590

PATIENT
  Sex: Male
  Weight: 75 kg

DRUGS (5)
  1. ARICEPT [Concomitant]
     Dosage: 1 DF
     Route: 048
  2. VOLTAREN [Suspect]
     Indication: OSTEOARTHRITIS
     Dosage: 1 DF (ONE TABLET DAILY)
     Route: 048
     Dates: end: 20101001
  3. ALDACTONE [Concomitant]
     Dosage: 2 DF
     Route: 048
  4. AMLODIPINE OD [Concomitant]
     Dosage: 1 DF
     Route: 048
  5. LASIX [Concomitant]
     Dosage: 2 DF
     Route: 048

REACTIONS (18)
  - BLOOD POTASSIUM DECREASED [None]
  - MONOCYTE COUNT DECREASED [None]
  - MONOCYTE COUNT INCREASED [None]
  - HAEMOGLOBIN DECREASED [None]
  - RHABDOMYOLYSIS [None]
  - WHITE BLOOD CELL COUNT INCREASED [None]
  - LYMPHOCYTE COUNT DECREASED [None]
  - EOSINOPHIL COUNT DECREASED [None]
  - ALANINE AMINOTRANSFERASE INCREASED [None]
  - PAIN IN EXTREMITY [None]
  - BLOOD CREATINE PHOSPHOKINASE INCREASED [None]
  - MUSCULOSKELETAL PAIN [None]
  - NEUTROPHIL COUNT INCREASED [None]
  - PLATELET COUNT INCREASED [None]
  - LIVER DISORDER [None]
  - ASPARTATE AMINOTRANSFERASE INCREASED [None]
  - BLOOD LACTATE DEHYDROGENASE INCREASED [None]
  - LYMPHOCYTE STIMULATION TEST POSITIVE [None]
